FAERS Safety Report 17014448 (Version 1)
Quarter: 2019Q4

REPORT INFORMATION
  Report Type: Spontaneous
  Country: US (occurrence: US)
  Receive Date: 20191111
  Receipt Date: 20191111
  Transmission Date: 20200122
  Serious: Yes (Hospitalization, Other)
  Sender: FDA-Public Use
  Company Number: US-HETERO-HET2019US01559

PATIENT

DRUGS (2)
  1. PROPAFENONE. [Suspect]
     Active Substance: PROPAFENONE
     Indication: SUICIDE ATTEMPT
     Dosage: 3.8 GRAM
     Route: 048
  2. VALSARTAN. [Suspect]
     Active Substance: VALSARTAN
     Indication: SUICIDE ATTEMPT
     Dosage: 11.7 GRAM
     Route: 048

REACTIONS (5)
  - Ventricular fibrillation [Recovering/Resolving]
  - Seizure [Recovering/Resolving]
  - Electrocardiogram QT prolonged [Recovering/Resolving]
  - Altered state of consciousness [Recovering/Resolving]
  - Intentional overdose [Recovering/Resolving]
